FAERS Safety Report 18042271 (Version 1)
Quarter: 2020Q3

REPORT INFORMATION
  Report Type: Spontaneous
  Country: DE (occurrence: DE)
  Receive Date: 20200720
  Receipt Date: 20200720
  Transmission Date: 20201103
  Serious: Yes (Death, Hospitalization, Other)
  Sender: FDA-Public Use
  Company Number: DE-TEVA-2020-DE-1800499

PATIENT
  Age: 48 Year
  Sex: Female
  Weight: 110 kg

DRUGS (2)
  1. LETROZOL [Suspect]
     Active Substance: LETROZOLE
     Indication: BREAST CANCER METASTATIC
     Dosage: 2.5 MILLIGRAM DAILY;
     Route: 048
     Dates: start: 20171129, end: 20200609
  2. KISQALI [Suspect]
     Active Substance: RIBOCICLIB
     Indication: BREAST CANCER METASTATIC
     Route: 048
     Dates: start: 20171129, end: 20200505

REACTIONS (3)
  - Acute hepatic failure [Fatal]
  - Hypoglycaemia [Unknown]
  - Hepatorenal failure [Unknown]

NARRATIVE: CASE EVENT DATE: 202006
